FAERS Safety Report 5469076-7 (Version None)
Quarter: 2007Q3

REPORT INFORMATION
  Report Type: 
  Country: None (occurrence: None)
  Receive Date: 20070820
  Receipt Date: 20070712
  Transmission Date: 20080115
  Serious: No
  Sender: FDA-Public Use
  Company Number: WAES 0707USA02144

PATIENT
  Age: 57 Year
  Sex: Female

DRUGS (13)
  1. JANUVIA [Suspect]
     Indication: TYPE 2 DIABETES MELLITUS
     Dosage: 100 MG/DAILY/PO
     Route: 048
     Dates: start: 20070301, end: 20070701
  2. ABILIFY [Concomitant]
  3. BENTYL [Concomitant]
  4. DILANTIN [Concomitant]
  5. EFFEXOR [Concomitant]
  6. K-DUR 10 [Concomitant]
  7. LASIX [Concomitant]
  8. LOMOTIL [Concomitant]
  9. PAXIL [Concomitant]
  10. [THERAPY UNSPECIFIED] [Concomitant]
  11. METOPROLOL TARTRATE [Concomitant]
  12. PANCREATIC EXTRACT [Concomitant]
  13. PREDNISONE [Concomitant]

REACTIONS (1)
  - RASH [None]
